FAERS Safety Report 5579675-X (Version None)
Quarter: 2008Q1

REPORT INFORMATION
  Report Type: 
  Country: None (occurrence: None)
  Receive Date: 20080102
  Receipt Date: 20071219
  Transmission Date: 20080703
  Serious: Yes (Other)
  Sender: FDA-Public Use
  Company Number: JP-BOEHRINGER INGELHEIM PHARMACEUTICALS, INC.-2007-DE-07031GD

PATIENT
  Age: 79 Year
  Sex: Male
  Weight: 66 kg

DRUGS (2)
  1. AMANTADINE HCL [Suspect]
     Indication: GAIT DISTURBANCE
  2. PRAMIPEXOLE DIHYDROCHLORIDE [Suspect]
     Indication: PARKINSONISM

REACTIONS (2)
  - DISEASE PROGRESSION [None]
  - SOMNOLENCE [None]
